FAERS Safety Report 5316742-X (Version None)
Quarter: 2007Q2

REPORT INFORMATION
  Report Type: 
  Country: None (occurrence: None)
  Receive Date: 20070501
  Receipt Date: 20070501
  Transmission Date: 20071010
  Serious: Yes (Hospitalization)
  Sender: FDA-Public Use
  Company Number: None

PATIENT
  Age: 62 Year
  Sex: Male
  Weight: 96 kg

DRUGS (10)
  1. ALDESEUKIN CHIRON CORPORATION [Suspect]
     Indication: METASTATIC MALIGNANT MELANOMA
     Dosage: 76MILLION IU TOTAL, IV
     Route: 042
     Dates: start: 20070409, end: 20070413
  2. INTERFERON ALPHA-2B SCHERING-PLOUGH CORPORATION [Suspect]
     Dosage: 52.6MILLION IU TOTAL, SC
     Route: 058
     Dates: start: 20070409, end: 20070413
  3. CISPLATIN [Suspect]
     Indication: METASTATIC MALIGNANT MELANOMA
     Dosage: 168MG TOTAL, IV
     Route: 042
     Dates: start: 20070409, end: 20070412
  4. VINBLASTINE SULFATE [Suspect]
     Dosage: 12.8MG TOTAL, IV
     Route: 042
     Dates: start: 20070409, end: 20070412
  5. TEMOZOLOMIDE SCHERING-PLOUGH CORPORATION [Suspect]
     Indication: METASTATIC MALIGNANT MELANOMA
     Dosage: 420MG EACH DAY, ORALLY
     Route: 048
     Dates: start: 20070409, end: 20070412
  6. PREGABALIN [Concomitant]
  7. ESCITALOPRAM OXALATE [Concomitant]
  8. ZOLIDEM CR [Concomitant]
  9. OXYCODONE HCL [Concomitant]
  10. CIPROFLOXACIN [Concomitant]

REACTIONS (11)
  - CANDIDIASIS [None]
  - CHILLS [None]
  - DIARRHOEA [None]
  - HYPOMAGNESAEMIA [None]
  - INSOMNIA [None]
  - MENTAL STATUS CHANGES [None]
  - PANCYTOPENIA [None]
  - PRURITUS [None]
  - PYREXIA [None]
  - RENAL FAILURE ACUTE [None]
  - TRANSAMINASES INCREASED [None]
